FAERS Safety Report 21854676 (Version 1)
Quarter: 2023Q1

REPORT INFORMATION
  Report Type: Spontaneous
  Country: US (occurrence: US)
  Receive Date: 20230112
  Receipt Date: 20230112
  Transmission Date: 20230418
  Serious: No
  Sender: FDA-Public Use
  Company Number: US-PERRIGO-22US004444

PATIENT
  Sex: Male
  Weight: 83.9 kg

DRUGS (3)
  1. IBUPROFEN [Suspect]
     Active Substance: IBUPROFEN
     Indication: Toothache
     Dosage: 400 MG, QD PRN
     Route: 048
     Dates: start: 2019, end: 2019
  2. IBUPROFEN [Suspect]
     Active Substance: IBUPROFEN
     Dosage: 600 MG, QD PRN
     Route: 048
     Dates: start: 2019, end: 2019
  3. IBUPROFEN [Suspect]
     Active Substance: IBUPROFEN
     Dosage: 800 MG, QD
     Route: 048
     Dates: start: 20220319, end: 20220320

REACTIONS (2)
  - Drug ineffective [Unknown]
  - Incorrect dose administered [Recovered/Resolved]

NARRATIVE: CASE EVENT DATE: 20190101
